FAERS Safety Report 4931679-3 (Version None)
Quarter: 2006Q1

REPORT INFORMATION
  Report Type: 
  Country: None (occurrence: None)
  Receive Date: 20060303
  Receipt Date: 20060112
  Transmission Date: 20060701
  Serious: No
  Sender: FDA-Public Use
  Company Number: US-BRISTOL-MYERS SQUIBB COMPANY-13244967

PATIENT
  Age: 54 Year
  Sex: Male
  Weight: 106 kg

DRUGS (8)
  1. ERBITUX [Suspect]
     Route: 042
  2. BENADRYL [Concomitant]
     Indication: PREMEDICATION
     Route: 048
  3. BENADRYL [Concomitant]
     Route: 030
  4. TYLENOL (CAPLET) [Concomitant]
     Indication: PREMEDICATION
     Route: 048
  5. ACTOS [Concomitant]
  6. WELLBUTRIN [Concomitant]
  7. CAMPTOSAR [Concomitant]
     Dates: start: 20050801, end: 20050801
  8. AVASTIN [Concomitant]
     Dates: start: 20050701, end: 20050801

REACTIONS (3)
  - INGROWING NAIL [None]
  - NAIL DISORDER [None]
  - RASH GENERALISED [None]
